FAERS Safety Report 10533562 (Version 3)
Quarter: 2014Q4

REPORT INFORMATION
  Report Type: Report from Study
  Country: US (occurrence: US)
  Receive Date: 20141022
  Receipt Date: 20141029
  Transmission Date: 20150529
  Serious: Yes (Other)
  Sender: FDA-Public Use
  Company Number: US-BRISTOL-MYERS SQUIBB COMPANY-18787879

PATIENT
  Age: 64 Year
  Sex: Female

DRUGS (5)
  1. PLACEBO [Suspect]
     Active Substance: UNSPECIFIED INGREDIENT
     Indication: RHEUMATOID ARTHRITIS
     Route: 042
     Dates: start: 20080625
  2. ABATACEPT [Suspect]
     Active Substance: ABATACEPT
     Indication: RHEUMATOID ARTHRITIS
     Route: 058
     Dates: start: 20080625
  3. METHOTREXATE [Suspect]
     Active Substance: METHOTREXATE
     Indication: RHEUMATOID ARTHRITIS
     Dates: start: 20060105
  4. MOBIC [Concomitant]
     Active Substance: MELOXICAM
     Dates: start: 2003
  5. FOLIC ACID. [Concomitant]
     Active Substance: FOLIC ACID
     Dates: start: 20060105

REACTIONS (2)
  - Gastric ulcer [Unknown]
  - Diffuse large B-cell lymphoma [Unknown]

NARRATIVE: CASE EVENT DATE: 20130312
